FAERS Safety Report 8538483-8 (Version None)
Quarter: 2012Q3

REPORT INFORMATION
  Report Type: 
  Country: None (occurrence: None)
  Receive Date: 20120726
  Receipt Date: 20120719
  Transmission Date: 20120928
  Serious: Yes (Death, Hospitalization)
  Sender: FDA-Public Use
  Company Number: JP-CELGENEUS-087-50794-12042413

PATIENT
  Sex: Female
  Weight: 40 kg

DRUGS (42)
  1. VIDAZA [Suspect]
     Dosage: 75 MILLIGRAM/SQ. METER
     Route: 041
     Dates: start: 20110922, end: 20110922
  2. DEXAMETHASONE SODIUM PHOSPHATE [Concomitant]
     Route: 065
     Dates: start: 20110921, end: 20110921
  3. DEXAMETHASONE SODIUM PHOSPHATE [Concomitant]
     Route: 065
     Dates: start: 20120123, end: 20120123
  4. GRAN [Concomitant]
     Route: 065
     Dates: start: 20111120, end: 20111124
  5. ALOXI [Concomitant]
     Route: 065
     Dates: start: 20120123, end: 20120123
  6. P N TWIN-3 [Concomitant]
     Route: 065
     Dates: start: 20120212, end: 20120304
  7. VIDAZA [Suspect]
     Dosage: 75 MILLIGRAM/SQ. METER
     Route: 041
     Dates: start: 20111124, end: 20111125
  8. CLINDAMYCIN [Concomitant]
     Route: 065
     Dates: start: 20111004, end: 20111010
  9. GRAN [Concomitant]
     Route: 065
     Dates: start: 20120202, end: 20120224
  10. FUNGUARD [Concomitant]
     Route: 065
     Dates: start: 20120210, end: 20120304
  11. VIDAZA [Suspect]
     Dosage: 75 MILLIGRAM/SQ. METER
     Route: 058
     Dates: start: 20110921, end: 20110921
  12. VIDAZA [Suspect]
     Dosage: 75 MILLIGRAM/SQ. METER
     Route: 041
     Dates: start: 20110926, end: 20110930
  13. TPN ELECTROLYTES IN PLASTIC CONTAINER [Concomitant]
     Route: 065
     Dates: start: 20120123, end: 20120210
  14. PRIMPERAN TAB [Concomitant]
     Route: 065
     Dates: start: 20111005, end: 20111106
  15. MAXIPIME [Concomitant]
     Route: 065
     Dates: start: 20120218, end: 20120302
  16. URSO 250 [Concomitant]
     Route: 065
  17. HICALIQ RF [Concomitant]
     Route: 065
     Dates: start: 20120303, end: 20120310
  18. MINOCYCLINE HCL [Concomitant]
     Route: 065
     Dates: start: 20120306, end: 20120310
  19. VIDAZA [Suspect]
     Dosage: 75 MILLIGRAM/SQ. METER
     Route: 041
     Dates: start: 20111128, end: 20111202
  20. VIDAZA [Suspect]
     Dosage: 75 MILLIGRAM/SQ. METER
     Route: 041
     Dates: start: 20120123, end: 20120127
  21. AMSULMYLAN [Concomitant]
     Route: 065
     Dates: start: 20111004, end: 20111010
  22. ZOSYN [Concomitant]
     Route: 065
     Dates: start: 20120211, end: 20120215
  23. CARBENIN [Concomitant]
     Route: 065
     Dates: start: 20110927, end: 20111004
  24. CEFOTIAM HYDROCHLORIDE [Concomitant]
     Route: 065
     Dates: start: 20111118, end: 20111127
  25. MAXIPIME [Concomitant]
     Route: 065
     Dates: start: 20111128, end: 20111212
  26. AMLODIPINE [Concomitant]
     Route: 065
  27. FLUMARIN [Concomitant]
     Route: 065
     Dates: end: 20120127
  28. DORIPENEM MONOHYDRATE [Concomitant]
     Route: 065
     Dates: start: 20120127, end: 20120210
  29. AMIKACIN SULFATE [Concomitant]
     Route: 065
     Dates: start: 20120218, end: 20120302
  30. VIDAZA [Suspect]
     Dosage: 75 MILLIGRAM/SQ. METER
     Route: 041
     Dates: start: 20120130, end: 20120131
  31. P N TWIN-1 [Concomitant]
     Route: 065
     Dates: start: 20120210, end: 20120210
  32. VANCOMYCIN HYDROCHLORIDE [Concomitant]
     Route: 065
     Dates: start: 20120302, end: 20120304
  33. ALBUMIN (HUMAN) [Concomitant]
     Route: 065
     Dates: start: 20120303, end: 20120310
  34. IRSOGLADINE MALEATE [Concomitant]
     Route: 065
  35. TPN ELECTROLYTES IN PLASTIC CONTAINER [Concomitant]
     Route: 065
     Dates: start: 20110929, end: 20111106
  36. EMEND [Concomitant]
     Route: 065
     Dates: start: 20110921, end: 20110921
  37. KYTRIL [Concomitant]
     Route: 065
     Dates: start: 20110921, end: 20110921
  38. GASMOTIN [Concomitant]
     Route: 065
  39. P N TWIN-2 [Concomitant]
     Route: 065
     Dates: start: 20120211, end: 20120211
  40. LEVOFLOXACIN [Concomitant]
     Route: 065
     Dates: start: 20120215, end: 20120217
  41. SENNA-MINT WAF [Concomitant]
     Route: 065
     Dates: start: 20110927, end: 20111221
  42. DAIKENCHUTO [Concomitant]
     Route: 065
     Dates: start: 20110927, end: 20111012

REACTIONS (4)
  - SEPSIS [None]
  - C-REACTIVE PROTEIN INCREASED [None]
  - FEBRILE NEUTROPENIA [None]
  - PYREXIA [None]
